FAERS Safety Report 9531177 (Version 3)
Quarter: 2013Q4

REPORT INFORMATION
  Report Type: Spontaneous
  Country: DE (occurrence: DE)
  Receive Date: 20130918
  Receipt Date: 20131014
  Transmission Date: 20140711
  Serious: Yes (Hospitalization, Other)
  Sender: FDA-Public Use
  Company Number: DE-AMGEN-DEUSP2013064443

PATIENT
  Age: 70 Year
  Sex: Female
  Weight: 66 kg

DRUGS (2)
  1. PROLIA [Suspect]
     Indication: OSTEOPOROSIS POSTMENOPAUSAL
     Dosage: 60 MG, Q6MO
     Route: 058
     Dates: start: 20101129, end: 20130429
  2. DOSS                               /00080501/ [Concomitant]
     Dosage: 1 MUG, 1
     Route: 048
     Dates: start: 2007

REACTIONS (9)
  - Femur fracture [Not Recovered/Not Resolved]
  - Periprosthetic fracture [Not Recovered/Not Resolved]
  - Depression [Unknown]
  - Bone disorder [Recovered/Resolved]
  - Arthralgia [Recovered/Resolved]
  - Dry mouth [Unknown]
  - Gait disturbance [Unknown]
  - Walking aid user [Unknown]
  - Pain in extremity [Recovering/Resolving]
